FAERS Safety Report 11474191 (Version 1)
Quarter: 2015Q3

REPORT INFORMATION
  Report Type: Spontaneous
  Country: US (occurrence: None)
  Receive Date: 20150908
  Receipt Date: 20150908
  Transmission Date: 20151125
  Serious: Yes (Other)
  Sender: FDA-Public Use
  Company Number: None

PATIENT
  Age: 73 Year
  Sex: Female
  Weight: 68.04 kg

DRUGS (4)
  1. THYROID [Concomitant]
     Active Substance: LEVOTHYROXINE\LIOTHYRONINE
  2. VITAMIN D [Concomitant]
     Active Substance: CHOLECALCIFEROL
  3. FIBER [Concomitant]
     Active Substance: PSYLLIUM HUSK
  4. PROLIA [Suspect]
     Active Substance: DENOSUMAB
     Indication: PRODUCT USED FOR UNKNOWN INDICATION
     Dosage: INJECTED IN AR EVERY 6 MONTHS

REACTIONS (17)
  - Arthralgia [None]
  - Dyspnoea [None]
  - Weight increased [None]
  - Haemorrhoids [None]
  - Polyp [None]
  - Abdominal pain [None]
  - Diarrhoea [None]
  - Diverticulitis [None]
  - Muscle spasms [None]
  - Musculoskeletal pain [None]
  - Blood pressure increased [None]
  - Pain in extremity [None]
  - Bladder disorder [None]
  - Fatigue [None]
  - Back pain [None]
  - Hypersomnia [None]
  - Drug ineffective [None]

NARRATIVE: CASE EVENT DATE: 20150108
